FAERS Safety Report 8608293-1 (Version None)
Quarter: 2012Q3

REPORT INFORMATION
  Report Type: 
  Country: None (occurrence: None)
  Receive Date: 20120809
  Receipt Date: 20120809
  Transmission Date: 20120928
  Serious: Yes (Other)
  Sender: FDA-Public Use
  Company Number: None

PATIENT
  Sex: Female
  Weight: 47.2 kg

DRUGS (3)
  1. TRANXENE [Concomitant]
  2. LACOSAMIDE [Suspect]
     Indication: EPILEPSY
     Dosage: 75 MG AM 100 MG PM, PO
     Route: 048
     Dates: start: 20120110, end: 20120316
  3. ZOLOFT [Concomitant]

REACTIONS (5)
  - AURA [None]
  - IMPULSIVE BEHAVIOUR [None]
  - ANXIETY [None]
  - ABNORMAL BEHAVIOUR [None]
  - DYSPHONIA [None]
